FAERS Safety Report 5794461-3 (Version None)
Quarter: 2008Q2

REPORT INFORMATION
  Report Type: 
  Country: None (occurrence: None)
  Receive Date: 20080630
  Receipt Date: 20080619
  Transmission Date: 20081010
  Serious: Yes (Disabling)
  Sender: FDA-Public Use
  Company Number: PHHY2008BR11704

PATIENT
  Age: 57 Year
  Sex: Female
  Weight: 53 kg

DRUGS (3)
  1. ZOLEDRONIC ACID [Suspect]
     Indication: OSTEOPOROSIS
     Dosage: 1 APPLICATION A YEAR
     Route: 042
  2. CALCIUM [Concomitant]
     Indication: OSTEOPOROSIS
     Dosage: 3 TABLETS PER DAY
     Route: 048
  3. VITAMIN D [Concomitant]
     Indication: OSTEOPOROSIS
     Dosage: 3 DF PER DAY
     Route: 048

REACTIONS (11)
  - BACK PAIN [None]
  - BONE PAIN [None]
  - CONSTIPATION [None]
  - GAIT DISTURBANCE [None]
  - HEADACHE [None]
  - MIGRAINE [None]
  - PYREXIA [None]
  - SENSORY DISTURBANCE [None]
  - SYNCOPE [None]
  - TREMOR [None]
  - VISUAL DISTURBANCE [None]
